FAERS Safety Report 9458032 (Version 1)
Quarter: 2013Q3

REPORT INFORMATION
  Report Type: Spontaneous
  Country: US (occurrence: US)
  Receive Date: 20130814
  Receipt Date: 20130814
  Transmission Date: 20140515
  Serious: No
  Sender: FDA-Public Use
  Company Number: US-JNJFOC-20130800187

PATIENT
  Sex: Female

DRUGS (2)
  1. INVEGA [Suspect]
     Indication: SCHIZOAFFECTIVE DISORDER
     Route: 048
     Dates: start: 201206, end: 201302
  2. INVEGA [Suspect]
     Indication: SCHIZOAFFECTIVE DISORDER
     Route: 048
     Dates: start: 20130506

REACTIONS (1)
  - Abnormal behaviour [Not Recovered/Not Resolved]
